FAERS Safety Report 5990674-6 (Version None)
Quarter: 2008Q4

REPORT INFORMATION
  Report Type: 
  Country: None (occurrence: None)
  Receive Date: 20081211
  Receipt Date: 20081202
  Transmission Date: 20090506
  Serious: Yes (Other)
  Sender: FDA-Public Use
  Company Number: PHHY2008IT30810

PATIENT
  Sex: Male

DRUGS (5)
  1. AREDIA [Suspect]
     Indication: MULTIPLE MYELOMA
     Dosage: 90 MG, QMO
     Dates: start: 20010928, end: 20021201
  2. ZOMETA [Suspect]
     Indication: METASTASES TO BONE
     Dosage: 4 MG, QMO
     Dates: start: 20030203
  3. DEXAMETHASONE [Concomitant]
  4. VINCRISTINE [Concomitant]
  5. ADRIBLASTINE [Concomitant]

REACTIONS (1)
  - OSTEOMYELITIS [None]
